FAERS Safety Report 6250644-X (Version None)
Quarter: 2009Q2

REPORT INFORMATION
  Report Type: 
  Country: None (occurrence: None)
  Receive Date: 20090630
  Receipt Date: 20090618
  Transmission Date: 20091009
  Serious: Yes (Other)
  Sender: FDA-Public Use
  Company Number: US-PFIZER INC-2009230260

PATIENT
  Sex: Female
  Weight: 63.502 kg

DRUGS (4)
  1. CORTEF [Suspect]
     Indication: ADDISON'S DISEASE
     Dosage: UNK
     Dates: start: 20030401
  2. CORTEF [Suspect]
     Indication: ADRENAL DISORDER
  3. FLORINEF [Concomitant]
     Dosage: UNK
  4. LEVOXYL [Concomitant]
     Dosage: UNK

REACTIONS (2)
  - COELIAC DISEASE [None]
  - RENIN INCREASED [None]
